FAERS Safety Report 6816961-7 (Version None)
Quarter: 2010Q3

REPORT INFORMATION
  Report Type: 
  Country: None (occurrence: None)
  Receive Date: 20100706
  Receipt Date: 20100609
  Transmission Date: 20110219
  Serious: Yes (Other)
  Sender: FDA-Public Use
  Company Number: PHEH2010US01109

PATIENT
  Sex: Female

DRUGS (4)
  1. EXFORGE [Suspect]
     Dosage: 10/320 MG, DAILY
     Dates: start: 20091001
  2. FUROSEMIDE [Concomitant]
  3. METOPROLOL TARTRATE [Concomitant]
  4. TERAZOSIN HCL [Concomitant]

REACTIONS (12)
  - BEDRIDDEN [None]
  - BLADDER DYSFUNCTION [None]
  - COUGH [None]
  - DIZZINESS [None]
  - DRY THROAT [None]
  - DYSPHAGIA [None]
  - DYSURIA [None]
  - HYPERHIDROSIS [None]
  - HYPOAESTHESIA [None]
  - MALAISE [None]
  - OROPHARYNGEAL PAIN [None]
  - THROAT IRRITATION [None]
